FAERS Safety Report 8083939-8 (Version None)
Quarter: 2012Q1

REPORT INFORMATION
  Report Type: 
  Country: None (occurrence: None)
  Receive Date: 20120128
  Receipt Date: 20110112
  Transmission Date: 20120608
  Serious: Yes (Other)
  Sender: FDA-Public Use
  Company Number: US-ABBOTT-11P-163-0697410-00

PATIENT
  Sex: Male
  Weight: 127.12 kg

DRUGS (8)
  1. HUMIRA [Suspect]
     Indication: PSORIASIS
     Route: 050
     Dates: start: 20090101, end: 20101202
  2. HUMIRA [Suspect]
     Route: 050
     Dates: start: 20110105
  3. TORSEMIDE [Concomitant]
     Indication: PRODUCT USED FOR UNKNOWN INDICATION
  4. MULTI-VITAMIN [Concomitant]
     Indication: PRODUCT USED FOR UNKNOWN INDICATION
  5. ASPIRIN [Concomitant]
     Indication: PRODUCT USED FOR UNKNOWN INDICATION
  6. DIOVAN [Concomitant]
     Indication: PRODUCT USED FOR UNKNOWN INDICATION
  7. NEXIUM [Concomitant]
     Indication: PRODUCT USED FOR UNKNOWN INDICATION
  8. ALLEGRA [Concomitant]
     Indication: PRODUCT USED FOR UNKNOWN INDICATION

REACTIONS (7)
  - SLUGGISHNESS [None]
  - VITAMIN D DECREASED [None]
  - PARAESTHESIA [None]
  - THROMBOPHLEBITIS SUPERFICIAL [None]
  - HYPOAESTHESIA [None]
  - OEDEMA PERIPHERAL [None]
  - FATIGUE [None]
